FAERS Safety Report 5648097-5 (Version None)
Quarter: 2008Q1

REPORT INFORMATION
  Report Type: 
  Country: None (occurrence: None)
  Receive Date: 20080229
  Receipt Date: 20080221
  Transmission Date: 20080703
  Serious: Yes (Death, Hospitalization)
  Sender: FDA-Public Use
  Company Number: 2008SP000770

PATIENT
  Age: 63 Year
  Sex: Female
  Weight: 56 kg

DRUGS (9)
  1. NOXAFIL [Suspect]
     Indication: TRANSPLANT
     Dosage: 200 MG;Q8H;PO
     Route: 048
     Dates: start: 20071031, end: 20071225
  2. CORTICOSTEROID [Concomitant]
  3. CELLCEPT [Concomitant]
  4. PREDNISONE TAB [Concomitant]
  5. MAGNESIOBOI [Concomitant]
  6. SEPTRIN FORTE [Concomitant]
  7. ADALAT [Concomitant]
  8. APOCARD [Concomitant]
  9. OMEPRAZOLE [Concomitant]

REACTIONS (8)
  - BLINDNESS [None]
  - CENTRAL PONTINE MYELINOLYSIS [None]
  - COORDINATION ABNORMAL [None]
  - CSF PROTEIN INCREASED [None]
  - DRUG INEFFECTIVE [None]
  - DRUG TOXICITY [None]
  - GENERAL PHYSICAL HEALTH DETERIORATION [None]
  - PARESIS [None]
